FAERS Safety Report 19031408 (Version 1)
Quarter: 2021Q1

REPORT INFORMATION
  Report Type: Spontaneous
  Country: SE (occurrence: SE)
  Receive Date: 20210319
  Receipt Date: 20210319
  Transmission Date: 20210420
  Serious: Yes (Other)
  Sender: FDA-Public Use
  Company Number: NVSC2021SE059036

PATIENT

DRUGS (1)
  1. MEKINIST [Suspect]
     Active Substance: TRAMETINIB DIMETHYL SULFOXIDE
     Indication: NEUROFIBROMATOSIS
     Dosage: UNK (AROUND 2.5 YEAR)
     Route: 065

REACTIONS (5)
  - Diabetes mellitus [Unknown]
  - Abdominal pain upper [Unknown]
  - Back pain [Unknown]
  - Paronychia [Unknown]
  - Off label use [Unknown]
